FAERS Safety Report 7477668-9 (Version None)
Quarter: 2011Q2

REPORT INFORMATION
  Report Type: 
  Country: None (occurrence: None)
  Receive Date: 20110513
  Receipt Date: 20110404
  Transmission Date: 20111010
  Serious: Yes (Hospitalization)
  Sender: FDA-Public Use
  Company Number: US-BAYER-201039422NA

PATIENT
  Age: 26 Year
  Sex: Female
  Weight: 47.619 kg

DRUGS (4)
  1. TRAMADOL HCL [Concomitant]
     Indication: PAIN
  2. YAZ [Suspect]
     Indication: PRODUCT USED FOR UNKNOWN INDICATION
     Dosage: UNK
     Route: 048
     Dates: start: 20080501
  3. MOTRIN [Concomitant]
  4. PENICILLIN V POTASSIUM [Concomitant]

REACTIONS (4)
  - PAIN [None]
  - GALLBLADDER DISORDER [None]
  - CHOLECYSTITIS ACUTE [None]
  - CHOLELITHIASIS [None]
